FAERS Safety Report 5782929-5 (Version None)
Quarter: 2008Q2

REPORT INFORMATION
  Report Type: 
  Country: None (occurrence: None)
  Receive Date: 20080619
  Receipt Date: 20080611
  Transmission Date: 20081010
  Serious: Yes (Death)
  Sender: FDA-Public Use
  Company Number: 001338

PATIENT
  Age: 57 Year
  Sex: Female

DRUGS (3)
  1. BUSULFEX [Suspect]
     Indication: STEM CELL TRANSPLANT
     Dosage: 30 ML, INTRAVENOUS
     Route: 042
     Dates: start: 20070618, end: 20070619
  2. ATG (ANTILYMPHOCYTE IMMUNOGLOBULIN (HORSE)) [Concomitant]
  3. MELPHALAN (MELPHALAN) [Concomitant]

REACTIONS (6)
  - ANOREXIA [None]
  - BONE MARROW TRANSPLANT [None]
  - MALAISE [None]
  - NAUSEA [None]
  - SEPSIS [None]
  - VOMITING [None]
